FAERS Safety Report 21799258 (Version 1)
Quarter: 2022Q4

REPORT INFORMATION
  Report Type: Spontaneous
  Country: US (occurrence: US)
  Receive Date: 20221230
  Receipt Date: 20221230
  Transmission Date: 20230112
  Serious: Yes (Death, Other)
  Sender: FDA-Public Use
  Company Number: US-BAYER-2022A175034

PATIENT
  Age: 70 Year
  Sex: Male

DRUGS (5)
  1. ASPIRIN [Suspect]
     Active Substance: ASPIRIN
  2. LISINOPRIL [Suspect]
     Active Substance: LISINOPRIL
  3. FLUOXETINE [Suspect]
     Active Substance: FLUOXETINE HYDROCHLORIDE
  4. AMLODIPINE [Suspect]
     Active Substance: AMLODIPINE BESYLATE
  5. PREDNISONE [Suspect]
     Active Substance: PREDNISONE

REACTIONS (6)
  - Pulmonary oedema [Fatal]
  - Respiratory alkalosis [Fatal]
  - Metabolic acidosis [Fatal]
  - Intentional overdose [Fatal]
  - Toxicity to various agents [Fatal]
  - Suicidal ideation [None]
